FAERS Safety Report 10177380 (Version 2)
Quarter: 2014Q2

REPORT INFORMATION
  Report Type: Spontaneous
  Country: US (occurrence: None)
  Receive Date: 20140416
  Receipt Date: 20140604
  Transmission Date: 20141212
  Serious: Yes (Hospitalization)
  Sender: FDA-Public Use
  Company Number: 163-POMAL-14011016

PATIENT
  Sex: Male
  Weight: 169 kg

DRUGS (1)
  1. POMALYST [Suspect]
     Indication: PLASMA CELL MYELOMA
     Dosage: 2 MG, 21 IN 28 D, UNK
     Dates: start: 201304

REACTIONS (2)
  - Pneumonia [None]
  - Pneumocystis jirovecii pneumonia [None]
